FAERS Safety Report 4492556-8 (Version None)
Quarter: 2004Q4

REPORT INFORMATION
  Report Type: 
  Country: None (occurrence: None)
  Receive Date: 20041029
  Receipt Date: 20041022
  Transmission Date: 20050328
  Serious: Yes (Death)
  Sender: FDA-Public Use
  Company Number: 2004US001294

PATIENT
  Age: 58 Year
  Sex: Male

DRUGS (6)
  1. AMBISOME [Suspect]
     Dosage: 200.00 MG, UID/QD, INTRAVENOUS
     Route: 042
     Dates: start: 20040914, end: 20040916
  2. CYTARABINE [Concomitant]
  3. CIPROFLOXACIN HCL [Concomitant]
  4. VANCOMYCIN [Concomitant]
  5. TIENAM (IMIPENEM, CILASTATIN, CILASTATIN SODIUM) [Concomitant]
  6. VFEND [Concomitant]

REACTIONS (1)
  - RESPIRATORY FAILURE [None]
